FAERS Safety Report 9355685 (Version 1)
Quarter: 2013Q2

REPORT INFORMATION
  Report Type: Spontaneous
  Country: US (occurrence: None)
  Receive Date: 20130618
  Receipt Date: 20130618
  Transmission Date: 20140414
  Serious: Yes (Other)
  Sender: FDA-Public Use
  Company Number: None

PATIENT
  Age: 35 Year
  Sex: Female
  Weight: 83.7 kg

DRUGS (7)
  1. DANAZOL [Suspect]
     Route: 048
     Dates: start: 20111102, end: 20130426
  2. DANAZOL [Suspect]
     Indication: APLASTIC ANAEMIA
     Route: 048
     Dates: start: 20111102, end: 20130426
  3. VITAMIN C [Concomitant]
  4. METAMUCIL [Concomitant]
  5. JOLLESA [Concomitant]
  6. LANSOPRAZOLE [Concomitant]
  7. LIPITOR [Concomitant]

REACTIONS (1)
  - Haemangioma [None]
